FAERS Safety Report 8973899 (Version 2)
Quarter: 2013Q1

REPORT INFORMATION
  Report Type: Spontaneous
  Country: JP (occurrence: JP)
  Receive Date: 20121218
  Receipt Date: 20130321
  Transmission Date: 20140127
  Serious: Yes (Hospitalization)
  Sender: FDA-Public Use
  Company Number: JP-GLAXOSMITHKLINE-B0843587A

PATIENT
  Age: 77 Year
  Sex: Female
  Weight: 40 kg

DRUGS (4)
  1. LAMICTAL [Suspect]
     Indication: PROPHYLAXIS
     Dosage: 25MG PER DAY
     Route: 048
     Dates: start: 20120813, end: 20120910
  2. TEGRETOL [Suspect]
     Indication: PROPHYLAXIS
     Dosage: 100MG PER DAY
     Route: 048
     Dates: start: 20120813, end: 20120910
  3. CRAVIT [Suspect]
     Indication: URINARY TRACT INFECTION
     Dosage: 500MG PER DAY
     Route: 048
     Dates: start: 20120827, end: 20120831
  4. ALEVIATIN [Concomitant]
     Route: 065

REACTIONS (14)
  - Stevens-Johnson syndrome [Recovered/Resolved]
  - Urinary tract infection [Unknown]
  - Erythema multiforme [Unknown]
  - Epidermal necrosis [Unknown]
  - Pyrexia [Unknown]
  - Erythema [Unknown]
  - Drug eruption [Unknown]
  - Generalised erythema [Unknown]
  - Lip erosion [Unknown]
  - Purpura [Unknown]
  - Lymphadenopathy [Unknown]
  - Lymphocytic infiltration [Unknown]
  - Perivascular dermatitis [Unknown]
  - Pigmentation disorder [Unknown]
